FAERS Safety Report 23612197 (Version 1)
Quarter: 2024Q1

REPORT INFORMATION
  Report Type: Spontaneous
  Country: US (occurrence: US)
  Receive Date: 20240308
  Receipt Date: 20240308
  Transmission Date: 20240409
  Serious: No
  Sender: FDA-Public Use
  Company Number: US-E2BLSMVVAL-SPO/USA/24/0003270

PATIENT
  Sex: Male

DRUGS (1)
  1. CLOZAPINE [Suspect]
     Active Substance: CLOZAPINE
     Indication: Product used for unknown indication
     Dosage: AT ONE TIME HIS PR HAD HIM DOWN TO 25 MG A DAY AND HE WAS NOT ABLE TO FALL ASLEEP AND FOUND IT VERY
     Route: 048

REACTIONS (4)
  - Hypersomnia [Unknown]
  - Insomnia [Unknown]
  - Feeling drunk [Unknown]
  - Disturbance in attention [Unknown]
